FAERS Safety Report 15498062 (Version 1)
Quarter: 2018Q4

REPORT INFORMATION
  Report Type: Spontaneous
  Country: US (occurrence: US)
  Receive Date: 20181014
  Receipt Date: 20181014
  Transmission Date: 20190205
  Serious: Yes (Hospitalization, Disabling)
  Sender: FDA-Public Use
  Company Number: None

PATIENT
  Age: 38 Year
  Sex: Female
  Weight: 67.5 kg

DRUGS (8)
  1. MULTIVITAMIN [Concomitant]
     Active Substance: VITAMINS
  2. CBD OIL [Concomitant]
     Active Substance: CANNABIDIOL\HERBALS
  3. ASPIRIN. [Concomitant]
     Active Substance: ASPIRIN
  4. ZIP FIZZ(B12) [Concomitant]
  5. MICROGESTIN FE 1.5/30 [Suspect]
     Active Substance: ETHINYL ESTRADIOL\NORETHINDRONE ACETATE
     Indication: ACNE
     Dosage: ?          QUANTITY:1 TABLET(S);?
     Route: 048
     Dates: start: 20171002, end: 20171109
  6. CRESTOR [Concomitant]
     Active Substance: ROSUVASTATIN CALCIUM
  7. MICROGESTIN FE 1.5/30 [Suspect]
     Active Substance: ETHINYL ESTRADIOL\NORETHINDRONE ACETATE
     Indication: MENSTRUAL CYCLE MANAGEMENT
     Dosage: ?          QUANTITY:1 TABLET(S);?
     Route: 048
     Dates: start: 20171002, end: 20171109
  8. 310 PROTEIN SHAKE [Concomitant]

REACTIONS (2)
  - Cerebrovascular accident [None]
  - Cerebral artery occlusion [None]

NARRATIVE: CASE EVENT DATE: 20171109
